FAERS Safety Report 10196255 (Version 1)
Quarter: 2014Q2

REPORT INFORMATION
  Report Type: Report from Study
  Country: CA (occurrence: CA)
  Receive Date: 20140527
  Receipt Date: 20140527
  Transmission Date: 20141212
  Serious: Yes (Hospitalization)
  Sender: FDA-Public Use
  Company Number: CA-JNJFOC-20140514045

PATIENT
  Age: 40 Year
  Sex: Female
  Weight: 180.3 kg

DRUGS (3)
  1. REMICADE [Suspect]
     Indication: CROHN^S DISEASE
     Route: 042
     Dates: start: 20120301
  2. IMURAN [Concomitant]
     Route: 065
  3. CITALOPRAM [Concomitant]
     Route: 065

REACTIONS (1)
  - Gastrointestinal stenosis [Unknown]
